FAERS Safety Report 21829777 (Version 1)
Quarter: 2023Q1

REPORT INFORMATION
  Report Type: Spontaneous
  Country: JP (occurrence: JP)
  Receive Date: 20230106
  Receipt Date: 20230106
  Transmission Date: 20230417
  Serious: Yes (Other)
  Sender: FDA-Public Use
  Company Number: JP-MSNLABS-2023MSNLIT00026

PATIENT

DRUGS (7)
  1. PACLITAXEL [Suspect]
     Active Substance: PACLITAXEL
     Indication: HER2 negative breast cancer
     Dosage: EVERY OTHER WEEK
     Route: 065
  2. PACLITAXEL [Suspect]
     Active Substance: PACLITAXEL
     Indication: Metastases to pancreas
  3. BEVACIZUMAB [Suspect]
     Active Substance: BEVACIZUMAB
     Indication: HER2 negative breast cancer
     Dosage: EVERY OTHER WEEK
     Route: 065
  4. BEVACIZUMAB [Suspect]
     Active Substance: BEVACIZUMAB
     Indication: Metastases to pancreas
  5. BENIDIPINE [Concomitant]
     Active Substance: BENIDIPINE
     Indication: Hypertension
     Route: 065
  6. Olmesartant [Concomitant]
     Indication: Hypertension
     Route: 065
  7. RABEPRAZOLE [Concomitant]
     Active Substance: RABEPRAZOLE
     Indication: Gastrooesophageal reflux disease
     Route: 065

REACTIONS (1)
  - Pancreatic pseudocyst [Recovered/Resolved]
